FAERS Safety Report 8451199 (Version 2)
Quarter: 2013Q3

REPORT INFORMATION
  Report Type: Report from Study
  Country: MX (occurrence: MX)
  Receive Date: 20120309
  Receipt Date: 20130712
  Transmission Date: 20140515
  Serious: Yes (Other)
  Sender: FDA-Public Use
  Company Number: PHHY2012MX018570

PATIENT
  Age: 93 Year
  Sex: Female

DRUGS (9)
  1. STALEVO [Suspect]
     Indication: PARKINSON^S DISEASE
     Dosage: 0.5 DF, QD (100/25/200 MG)
     Route: 048
     Dates: start: 201110, end: 20130705
  2. STALEVO [Suspect]
     Indication: DIFFUSE AXONAL INJURY
  3. STALEVO [Suspect]
     Indication: OFF LABEL USE
  4. PROTALGINE [Concomitant]
     Indication: CONVULSION
     Dosage: 0.25 UKN, UNK
     Route: 048
     Dates: start: 201111
  5. BICONCOR [Concomitant]
     Dosage: 0.5 DF, UNK
     Dates: start: 201011
  6. AKATINOL [Concomitant]
     Dosage: UNK UKN, UNK
     Dates: start: 201111
  7. LEVOTHYROXINE [Concomitant]
     Dosage: UNK UKN, UNK
     Dates: start: 201112
  8. ASPIRIN PROTECT [Concomitant]
     Indication: HYPERTENSION
     Dosage: UNK UKN, UNK
     Dates: start: 201011
  9. SEROQUEL [Concomitant]
     Indication: CONDUCT DISORDER
     Dosage: UNK UKN, UNK
     Dates: start: 20130705

REACTIONS (7)
  - Pubis fracture [Recovered/Resolved]
  - Dementia [Not Recovered/Not Resolved]
  - Hallucination, visual [Recovering/Resolving]
  - Drug administration error [Not Recovered/Not Resolved]
  - Weight decreased [Unknown]
  - Movement disorder [Not Recovered/Not Resolved]
  - Memory impairment [Not Recovered/Not Resolved]
